FAERS Safety Report 6795005-X (Version None)
Quarter: 2010Q2

REPORT INFORMATION
  Report Type: 
  Country: None (occurrence: None)
  Receive Date: 20100624
  Receipt Date: 20100624
  Transmission Date: 20101027
  Serious: Yes (Other)
  Sender: FDA-Public Use
  Company Number: None

PATIENT
  Sex: Male
  Weight: 53.5 kg

DRUGS (6)
  1. FEBUXOSTAT  40 MG TAKEDA [Suspect]
  2. DILTIAZEM [Concomitant]
  3. EPOGEN [Concomitant]
  4. LOSARTAN POTASSIUM [Concomitant]
  5. ASCORBIC ACID [Concomitant]
  6. COLCHICINE [Concomitant]

REACTIONS (2)
  - PRURITUS GENERALISED [None]
  - RASH PAPULAR [None]
